FAERS Safety Report 9224454 (Version 1)
Quarter: 2013Q2

REPORT INFORMATION
  Report Type: Spontaneous
  Country: US (occurrence: None)
  Receive Date: 20130409
  Receipt Date: 20130409
  Transmission Date: 20140414
  Serious: Yes (Hospitalization)
  Sender: FDA-Public Use
  Company Number: None

PATIENT
  Age: 71 Year
  Sex: Female

DRUGS (5)
  1. TICAGRELOR [Suspect]
     Indication: PERCUTANEOUS CORONARY INTERVENTION
     Route: 048
     Dates: start: 20130307, end: 20130318
  2. TICAGRELOR [Suspect]
     Indication: THROMBOSIS PROPHYLAXIS
     Route: 048
     Dates: start: 20130307, end: 20130318
  3. ASPIRIN [Concomitant]
  4. HEPARIN [Concomitant]
  5. ABCIXIMAB [Concomitant]

REACTIONS (5)
  - Cardiac failure congestive [None]
  - Epistaxis [None]
  - Rash [None]
  - No therapeutic response [None]
  - Platelet count decreased [None]
